FAERS Safety Report 9584961 (Version 1)
Quarter: 2013Q4

REPORT INFORMATION
  Report Type: Spontaneous
  Country: US (occurrence: US)
  Receive Date: 20131002
  Receipt Date: 20131002
  Transmission Date: 20140711
  Serious: No
  Sender: FDA-Public Use
  Company Number: US-AMGEN-USASP2013056954

PATIENT
  Age: 34 Year
  Sex: Male
  Weight: 60.77 kg

DRUGS (4)
  1. ENBREL [Suspect]
     Indication: PSORIASIS
     Dosage: 50 MG, QWK
     Route: 058
  2. KLONOPIN [Concomitant]
     Dosage: 1 MG, UNK
  3. REMERON [Concomitant]
     Dosage: 15 MG, UNK
  4. VISTARIL                           /00058402/ [Concomitant]
     Dosage: 50 MG, UNK

REACTIONS (1)
  - Arthropathy [Unknown]
